FAERS Safety Report 9202428 (Version 1)
Quarter: 2013Q2

REPORT INFORMATION
  Report Type: Spontaneous
  Country: GB (occurrence: GB)
  Receive Date: 20130401
  Receipt Date: 20130401
  Transmission Date: 20140414
  Serious: Yes (Disabling)
  Sender: FDA-Public Use
  Company Number: GB-SANTEN INC.-INC-13-000103

PATIENT
  Sex: Male
  Weight: 55 kg

DRUGS (9)
  1. LEVOFLOXACIN [Suspect]
  2. AQUEOUS CREAM [Concomitant]
     Dates: start: 20130124, end: 20130221
  3. ASPIRIN [Concomitant]
     Dates: start: 20120924, end: 20121217
  4. ASPIRIN [Concomitant]
     Dates: start: 20130124
  5. CODEINE PHOSPHATE [Concomitant]
     Dates: start: 20121207, end: 20121217
  6. CODEINE PHOSPHATE [Concomitant]
     Dates: start: 20130124, end: 20130203
  7. LISINOPRIL [Concomitant]
     Dates: start: 20130124
  8. SIMVASTATIN [Concomitant]
     Dates: start: 20121018, end: 20121213
  9. SIMVASTATIN [Concomitant]
     Dates: start: 20130124

REACTIONS (1)
  - Tendonitis [Unknown]
